FAERS Safety Report 5049575-2 (Version None)
Quarter: 2006Q3

REPORT INFORMATION
  Report Type: 
  Country: None (occurrence: None)
  Receive Date: 20060712
  Receipt Date: 20060515
  Transmission Date: 20061208
  Serious: Yes (Death, Life-Threatening, Hospitalization, Other)
  Sender: FDA-Public Use
  Company Number: JP-BRISTOL-MYERS SQUIBB COMPANY-13386040

PATIENT
  Age: 83 Year
  Sex: Male

DRUGS (4)
  1. GATIFLOXACIN [Suspect]
     Indication: BRONCHITIS ACUTE
     Route: 048
     Dates: start: 20060410, end: 20060412
  2. CEFXON [Suspect]
     Indication: BRONCHITIS ACUTE
     Route: 041
     Dates: start: 20060410, end: 20060410
  3. METHISTA [Concomitant]
     Route: 048
     Dates: start: 20060410, end: 20060412
  4. ISOTONIC SODIUM CHLORIDE [Concomitant]
     Route: 042
     Dates: start: 20060411, end: 20060412

REACTIONS (3)
  - ARRHYTHMIA [None]
  - CARDIAC FAILURE ACUTE [None]
  - DRUG ERUPTION [None]
